FAERS Safety Report 7265082-0 (Version None)
Quarter: 2011Q1

REPORT INFORMATION
  Report Type: 
  Country: None (occurrence: None)
  Receive Date: 20110131
  Receipt Date: 20110119
  Transmission Date: 20110831
  Serious: Yes (Hospitalization)
  Sender: FDA-Public Use
  Company Number: CH-SANOFI-AVENTIS-2011SA003700

PATIENT
  Age: 63 Year
  Sex: Female
  Weight: 46 kg

DRUGS (7)
  1. IMOVANE [Concomitant]
     Route: 048
  2. AMLODIPINE [Concomitant]
     Route: 048
  3. CALCIMAGON-D3 [Concomitant]
     Dosage: DOSE:1 UNIT(S)
     Route: 048
  4. DEANXIT [Concomitant]
     Dosage: DOSE:1 UNIT(S)
     Route: 048
  5. ASPIRIN [Concomitant]
     Route: 048
  6. PLAQUENIL [Suspect]
     Route: 048
     Dates: start: 20030101, end: 20110115
  7. CONCOR [Concomitant]
     Indication: ESSENTIAL HYPERTENSION
     Route: 048

REACTIONS (5)
  - NEUROMYOPATHY [None]
  - ASTHENIA [None]
  - CARDIAC FAILURE [None]
  - MUSCULAR WEAKNESS [None]
  - WEIGHT DECREASED [None]
